FAERS Safety Report 23161194 (Version 3)
Quarter: 2023Q4

REPORT INFORMATION
  Report Type: Spontaneous
  Country: US (occurrence: US)
  Receive Date: 20231108
  Receipt Date: 20231215
  Transmission Date: 20240110
  Serious: No
  Sender: FDA-Public Use
  Company Number: US-Calliditas-2023CAL01401

PATIENT
  Age: 74 Year
  Sex: Female
  Weight: 69.4 kg

DRUGS (1)
  1. TARPEYO [Suspect]
     Active Substance: BUDESONIDE
     Indication: IgA nephropathy
     Dosage: 16 MG (4 MG CAPSULES) ONCE DAILY
     Route: 048
     Dates: start: 20230621

REACTIONS (9)
  - Purpura [Unknown]
  - Eye swelling [Unknown]
  - Joint swelling [Not Recovered/Not Resolved]
  - Ocular hyperaemia [Not Recovered/Not Resolved]
  - Contusion [Unknown]
  - Blood pressure increased [Unknown]
  - Laboratory test abnormal [Unknown]
  - Dry throat [Unknown]
  - Swelling face [Unknown]
